FAERS Safety Report 9750333 (Version 1)
Quarter: 2013Q4

REPORT INFORMATION
  Report Type: Spontaneous
  Country: US (occurrence: US)
  Receive Date: 20131212
  Receipt Date: 20131212
  Transmission Date: 20140711
  Serious: No
  Sender: FDA-Public Use
  Company Number: US-BAYER-2013-147184

PATIENT
  Age: 48 Year
  Sex: Female
  Weight: 112.2 kg

DRUGS (13)
  1. ALEVE CAPLET [Suspect]
  2. VICODIN [Concomitant]
     Dosage: 1 DF, QID FOR 3 DAYS AS NEEDED
     Route: 048
  3. ZONISAMIDE [Concomitant]
     Dosage: 3 DF, HS
     Route: 048
  4. LYRICA [Concomitant]
     Dosage: 1 DF, BID FOR 90 DAYS
     Route: 048
  5. FLUOXETINE [Concomitant]
     Dosage: 1 DF, QD
     Route: 048
  6. CALCIUM D [Concomitant]
     Dosage: 1 DF, QD
     Route: 048
  7. VITAMIN B12 [Concomitant]
     Dosage: 1 DF, QD
     Route: 048
  8. MULTIPLE VITAMINS [Concomitant]
     Dosage: 1 DF, QD
     Route: 048
  9. DIFLORASONE [Concomitant]
     Indication: RASH
     Dosage: 1 DF, BID
     Route: 061
  10. ALPRAZOLAM [Concomitant]
     Indication: ANXIETY
     Dosage: 1 DF, QID AS NEEDED
  11. VITAMIN D3 [Concomitant]
     Dosage: 1 DF, QD
  12. CELEBREX [Concomitant]
     Indication: ABDOMINAL DISCOMFORT
     Dosage: 200 MG, QD
     Route: 048
     Dates: start: 20110520, end: 20130531
  13. IBUPROFEN [Concomitant]

REACTIONS (1)
  - Gastric disorder [None]
